FAERS Safety Report 9676249 (Version 1)
Quarter: 2013Q4

REPORT INFORMATION
  Report Type: Spontaneous
  Country: US (occurrence: US)
  Receive Date: 20131107
  Receipt Date: 20131107
  Transmission Date: 20140711
  Serious: No
  Sender: FDA-Public Use
  Company Number: US-ENDO PHARMACEUTICALS INC.-SUTR20120005

PATIENT
  Age: 63 Year
  Sex: Female

DRUGS (3)
  1. SULFAMETHOXAZOLE/TRIMETHOPRIM TABLETS [Suspect]
     Indication: URINARY TRACT INFECTION
     Dosage: DOUBLE STRENGTH 6 TABLETS
     Route: 048
     Dates: start: 2012, end: 2012
  2. PIN-X TABLETS [Concomitant]
     Indication: ENTEROBIASIS
     Dates: start: 2012
  3. VERMOX [Concomitant]
     Indication: ENTEROBIASIS

REACTIONS (1)
  - Drug ineffective [Not Recovered/Not Resolved]
